FAERS Safety Report 25232209 (Version 1)
Quarter: 2025Q2

REPORT INFORMATION
  Report Type: Spontaneous
  Country: US (occurrence: US)
  Receive Date: 20250423
  Receipt Date: 20250423
  Transmission Date: 20250716
  Serious: Yes (Other)
  Sender: AMGEN
  Company Number: US-AMGEN-USASP2025075408

PATIENT
  Sex: Male

DRUGS (1)
  1. PREDNISONE [Suspect]
     Active Substance: PREDNISONE
     Indication: Pancreatitis
     Dosage: 40 MILLIGRAM, QD
     Route: 040

REACTIONS (3)
  - Haemodynamic instability [Unknown]
  - Autoimmune pancreatitis [Unknown]
  - Off label use [Unknown]
